FAERS Safety Report 9189922 (Version 1)
Quarter: 2013Q1

REPORT INFORMATION
  Report Type: Spontaneous
  Country: PL (occurrence: PL)
  Receive Date: 20130326
  Receipt Date: 20130326
  Transmission Date: 20140127
  Serious: Yes (Other)
  Sender: FDA-Public Use
  Company Number: PL-AMGEN-POLSP2013020946

PATIENT
  Age: 30 Year
  Sex: Female
  Weight: 48 kg

DRUGS (6)
  1. ENBREL [Suspect]
     Indication: RHEUMATOID ARTHRITIS
     Dosage: 50 MG, WEEKLY
     Route: 058
     Dates: start: 201112, end: 20120724
  2. METYPRED                           /00049601/ [Concomitant]
     Indication: RHEUMATOID ARTHRITIS
     Dosage: 4 MG, QD
     Route: 048
     Dates: start: 2008
  3. NOLPAZA [Concomitant]
     Indication: GASTRITIS
     Dosage: 20 MG, 1X/DAY
     Route: 048
     Dates: start: 2011
  4. KALDYUM [Concomitant]
     Indication: SUPPLEMENTATION THERAPY
     Dosage: 2 X 1
     Route: 048
     Dates: start: 2011
  5. OYSTERCAL [Concomitant]
     Indication: SUPPLEMENTATION THERAPY
     Dosage: 1 X 1
  6. EUTHYROX [Concomitant]
     Indication: SUPPLEMENTATION THERAPY
     Dosage: 150 UG, 1X/DAY
     Route: 048

REACTIONS (4)
  - Oedema mucosal [Recovered/Resolved]
  - Face oedema [Recovered/Resolved]
  - Skin burning sensation [Recovered/Resolved]
  - Injection site erythema [Recovered/Resolved]
